FAERS Safety Report 7442330-5 (Version None)
Quarter: 2011Q2

REPORT INFORMATION
  Report Type: 
  Country: None (occurrence: None)
  Receive Date: 20110425
  Receipt Date: 20110425
  Transmission Date: 20111010
  Serious: Yes (Hospitalization)
  Sender: FDA-Public Use
  Company Number: None

PATIENT
  Sex: Male
  Weight: 63.5036 kg

DRUGS (6)
  1. THEOPHILLINE [Concomitant]
  2. VENTOLIN [Concomitant]
  3. SPIRIVA [Suspect]
     Indication: MEDICAL DEVICE COMPLICATION
     Dosage: 2 X DAY INHAL
     Route: 055
     Dates: start: 20070516, end: 20070603
  4. SPIRIVA [Suspect]
     Indication: LUNG DISORDER
     Dosage: 2 X DAY INHAL
     Route: 055
     Dates: start: 20070516, end: 20070603
  5. METHYLPREDNISOLONE [Suspect]
     Indication: ASTHMA
     Dosage: 60 MG 1ST DAY 1 X DAY PO
     Route: 048
     Dates: start: 20070612, end: 20070612
  6. FLOVENT [Concomitant]

REACTIONS (9)
  - ASTHMA [None]
  - PALPITATIONS [None]
  - HYPOPNOEA [None]
  - DEVICE INEFFECTIVE [None]
  - THROAT TIGHTNESS [None]
  - FEELING ABNORMAL [None]
  - SLEEP APNOEA SYNDROME [None]
  - ACTIVITIES OF DAILY LIVING IMPAIRED [None]
  - BLOOD PRESSURE INCREASED [None]
